FAERS Safety Report 16408465 (Version 1)
Quarter: 2019Q2

REPORT INFORMATION
  Report Type: Spontaneous
  Country: FR (occurrence: FR)
  Receive Date: 20190610
  Receipt Date: 20190610
  Transmission Date: 20190711
  Serious: Yes (Other)
  Sender: FDA-Public Use
  Company Number: FR-SUN PHARMACEUTICAL INDUSTRIES LTD-2019RR-210044

PATIENT
  Age: 90 Year
  Sex: Female

DRUGS (2)
  1. CLARITHROMYCIN. [Suspect]
     Active Substance: CLARITHROMYCIN
     Indication: LUNG DISORDER
     Dosage: 1000 MILLIGRAM, UNK
     Route: 048
     Dates: start: 20181102, end: 20181103
  2. BASDENE 25 MG, COMPRIME [Suspect]
     Active Substance: BENZYLTHIOURACIL
     Indication: HYPERTHYROIDISM
     Dosage: 50 MILLIGRAM, UNK
     Route: 048
     Dates: start: 20181102, end: 20181103

REACTIONS (1)
  - Seizure [Recovered/Resolved]

NARRATIVE: CASE EVENT DATE: 20181103
